FAERS Safety Report 17513428 (Version 1)
Quarter: 2020Q1

REPORT INFORMATION
  Report Type: Report from Study
  Country: CA (occurrence: CA)
  Receive Date: 20200306
  Receipt Date: 20200306
  Transmission Date: 20200409
  Serious: Yes (Hospitalization)
  Sender: FDA-Public Use
  Company Number: CA-BIOGEN-2020BI00844567

PATIENT
  Sex: Male

DRUGS (1)
  1. SPINRAZA [Suspect]
     Active Substance: NUSINERSEN
     Indication: SPINAL MUSCULAR ATROPHY
     Dosage: 12 MILLIGRAM/MILLILITER?DAYS 0, 14, 28, 58, THEN EVERY 4 MONTHS THEREAFTER
     Route: 037
     Dates: start: 20200103

REACTIONS (2)
  - Oxygen saturation decreased [Unknown]
  - Respiratory distress [Unknown]
